FAERS Safety Report 25319399 (Version 1)
Quarter: 2025Q2

REPORT INFORMATION
  Report Type: Spontaneous
  Country: US (occurrence: None)
  Receive Date: 20250514
  Receipt Date: 20250514
  Transmission Date: 20250717
  Serious: Yes (Other)
  Sender: FDA-CTU
  Company Number: None

PATIENT
  Age: 74 Year
  Sex: Female
  Weight: 67.5 kg

DRUGS (12)
  1. VOQUEZNA [Suspect]
     Active Substance: VONOPRAZAN FUMARATE
     Indication: Gastrooesophageal reflux disease
     Dosage: 90 TABLET(S) DAILY ORAL
     Route: 048
     Dates: start: 20250329, end: 20250510
  2. LIOTHYRONINE [Concomitant]
     Active Substance: LIOTHYRONINE
  3. SYNTHROID [Concomitant]
     Active Substance: LEVOTHYROXINE SODIUM
  4. ALLOPURINOL [Concomitant]
     Active Substance: ALLOPURINOL
  5. REPATHA [Concomitant]
     Active Substance: EVOLOCUMAB
  6. ESTRADIOL [Concomitant]
     Active Substance: ESTRADIOL
  7. FAMOTIDINE [Concomitant]
     Active Substance: FAMOTIDINE
  8. ESOMEPRAZOLE [Concomitant]
     Active Substance: ESOMEPRAZOLE
  9. VITAMINS [Concomitant]
     Active Substance: VITAMINS
  10. CALCIUM [Concomitant]
     Active Substance: CALCIUM
  11. FISH OIL [Concomitant]
     Active Substance: FISH OIL
  12. VITAMIN D3 [Concomitant]
     Active Substance: CHOLECALCIFEROL

REACTIONS (11)
  - Urine abnormality [None]
  - Vulvovaginal pruritus [None]
  - Pruritus [None]
  - Sleep disorder [None]
  - Depressed mood [None]
  - Flat affect [None]
  - Disturbance in attention [None]
  - Anxiety [None]
  - Decreased interest [None]
  - Abulia [None]
  - Constipation [None]

NARRATIVE: CASE EVENT DATE: 20250510
